FAERS Safety Report 16969191 (Version 1)
Quarter: 2019Q4

REPORT INFORMATION
  Report Type: Spontaneous
  Country: US (occurrence: US)
  Receive Date: 20191029
  Receipt Date: 20191029
  Transmission Date: 20200122
  Serious: Yes (Other)
  Sender: FDA-Public Use
  Company Number: US-BAYER-2019-193174

PATIENT
  Age: 88 Year
  Sex: Male

DRUGS (2)
  1. MYRBETRIQ [Interacting]
     Active Substance: MIRABEGRON
     Indication: PRODUCT USE IN UNAPPROVED INDICATION
     Dosage: 50 MG, QD
     Dates: start: 201909
  2. MIRALAX [Suspect]
     Active Substance: POLYETHYLENE GLYCOL 3350
     Indication: CONSTIPATION
     Dosage: 0.5 DF, QD

REACTIONS (7)
  - Nocturia [Recovering/Resolving]
  - Diarrhoea [Recovering/Resolving]
  - Pollakiuria [Unknown]
  - Back pain [Unknown]
  - Drug interaction [Unknown]
  - Neurogenic bladder [Unknown]
  - Insomnia [Recovering/Resolving]
